FAERS Safety Report 7808688-X (Version None)
Quarter: 2011Q4

REPORT INFORMATION
  Report Type: 
  Country: None (occurrence: None)
  Receive Date: 20111012
  Receipt Date: 20111010
  Transmission Date: 20120403
  Serious: Yes (Other)
  Sender: FDA-Public Use
  Company Number: GB-ASTELLAS-2011EU006988

PATIENT
  Age: 30 Year
  Sex: Female

DRUGS (2)
  1. OMEPRAZOLE [Concomitant]
     Dosage: UNK
     Route: 065
  2. SOLIFENACIN SUCCINATE [Suspect]
     Indication: HYPERTONIC BLADDER
     Dosage: 5 MG, UNKNOWN/D
     Route: 048
     Dates: start: 20110924, end: 20110926

REACTIONS (3)
  - DIZZINESS [None]
  - CHEST DISCOMFORT [None]
  - DYSPNOEA [None]
